FAERS Safety Report 4661303-9 (Version None)
Quarter: 2005Q2

REPORT INFORMATION
  Report Type: 
  Country: None (occurrence: None)
  Receive Date: 20050513
  Receipt Date: 20050502
  Transmission Date: 20051028
  Serious: Yes (Hospitalization)
  Sender: FDA-Public Use
  Company Number: JP-JNJFOC-20050405108

PATIENT
  Age: 84 Year
  Sex: Female

DRUGS (1)
  1. OFLOCET [Suspect]
     Indication: URINARY TRACT INFECTION
     Route: 049
     Dates: start: 20050307, end: 20050314

REACTIONS (4)
  - CONFUSIONAL STATE [None]
  - DRUG LEVEL INCREASED [None]
  - ENCEPHALOPATHY [None]
  - MYOCLONUS [None]
